FAERS Safety Report 9522196 (Version 1)
Quarter: 2013Q1

REPORT INFORMATION
  Report Type: Spontaneous
  Country: US (occurrence: None)
  Receive Date: 20130305
  Receipt Date: 20130305
  Transmission Date: 20140127
  Serious: Yes (Other)
  Sender: FDA-Public Use
  Company Number: 163-21880-12020721

PATIENT
  Age: 75 Year
  Sex: Female

DRUGS (6)
  1. REVLIMID [Suspect]
     Indication: PLASMA CELL MYELOMA
     Dosage: 10 MG, 21 IN 21 D, PO
     Route: 048
     Dates: start: 20110701
  2. ZOMETA (ZOLEDRONIC ACID) [Concomitant]
  3. LASIX (FUROSEMIDE) [Concomitant]
  4. GABAPENTIN [Concomitant]
  5. PPLAVIX (CLOPIDOGREL SULFATE) [Concomitant]
  6. METFORMIN HCL (METFORMIN HYDROCHLORIDE) [Concomitant]

REACTIONS (3)
  - Paraesthesia [None]
  - Hypoaesthesia [None]
  - Local swelling [None]
